FAERS Safety Report 10882714 (Version 2)
Quarter: 2015Q1

REPORT INFORMATION
  Report Type: Spontaneous
  Country: US (occurrence: US)
  Receive Date: 20150303
  Receipt Date: 20150304
  Transmission Date: 20150721
  Serious: No
  Sender: FDA-Public Use
  Company Number: US-GLAXOSMITHKLINE-US2015023120

PATIENT
  Age: 63 Year
  Sex: Female

DRUGS (18)
  1. ADVAIR HFA [Suspect]
     Active Substance: FLUTICASONE PROPIONATE\SALMETEROL XINAFOATE
     Indication: PRODUCT USED FOR UNKNOWN INDICATION
     Dosage: UNK
  2. VITAMIN D3 [Concomitant]
     Active Substance: CHOLECALCIFEROL
  3. BONIVA [Concomitant]
     Active Substance: IBANDRONATE SODIUM
  4. BREO ELLIPTA [Suspect]
     Active Substance: FLUTICASONE FUROATE\VILANTEROL TRIFENATATE
     Indication: CHRONIC OBSTRUCTIVE PULMONARY DISEASE
     Dosage: 1 PUFF(S), QD
     Route: 055
     Dates: start: 20140913
  5. CRESTOR [Concomitant]
     Active Substance: ROSUVASTATIN CALCIUM
  6. PROTONIX [Concomitant]
     Active Substance: PANTOPRAZOLE SODIUM
  7. MUPIROCIN NASAL WASH [Concomitant]
  8. BIOTIN [Concomitant]
     Active Substance: BIOTIN
  9. PROAIR HFA [Concomitant]
     Active Substance: ALBUTEROL SULFATE
  10. VOLTAREN [Concomitant]
     Active Substance: DICLOFENAC SODIUM
  11. BUDESONIDE NASAL WASH [Concomitant]
  12. PREDNISONE. [Concomitant]
     Active Substance: PREDNISONE
  13. SINGULAIR [Concomitant]
     Active Substance: MONTELUKAST SODIUM
  14. DULOXETINE [Concomitant]
     Active Substance: DULOXETINE
  15. VAGIFEM [Concomitant]
     Active Substance: ESTRADIOL
  16. LOSARTAN [Concomitant]
     Active Substance: LOSARTAN
  17. PREMARIN [Concomitant]
     Active Substance: ESTROGENS, CONJUGATED
  18. DYMISTA [Concomitant]
     Active Substance: AZELASTINE HYDROCHLORIDE\FLUTICASONE PROPIONATE

REACTIONS (10)
  - Drug ineffective [Unknown]
  - Dysphonia [Not Recovered/Not Resolved]
  - Rhinorrhoea [Unknown]
  - Malaise [Unknown]
  - Viral infection [Unknown]
  - Chest discomfort [Unknown]
  - Cough [Not Recovered/Not Resolved]
  - Chronic sinusitis [Not Recovered/Not Resolved]
  - Throat tightness [Unknown]
  - Fatigue [Unknown]

NARRATIVE: CASE EVENT DATE: 201408
